FAERS Safety Report 7010245-2 (Version None)
Quarter: 2010Q3

REPORT INFORMATION
  Report Type: 
  Country: None (occurrence: None)
  Receive Date: 20100909
  Receipt Date: 20100812
  Transmission Date: 20110219
  Serious: No
  Sender: FDA-Public Use
  Company Number: 2010SP043928

PATIENT
  Age: 38 Year
  Sex: Male

DRUGS (3)
  1. SAPHRIS [Suspect]
     Indication: PRODUCT USED FOR UNKNOWN INDICATION
     Dosage: 5 MG ; BID
     Dates: start: 20100802
  2. RISPERIDONE [Concomitant]
  3. LISINOPRIL [Concomitant]

REACTIONS (2)
  - PARAESTHESIA ORAL [None]
  - TONSILLAR HYPERTROPHY [None]
